FAERS Safety Report 18931811 (Version 1)
Quarter: 2021Q1

REPORT INFORMATION
  Report Type: Spontaneous
  Country: US (occurrence: US)
  Receive Date: 20210224
  Receipt Date: 20210224
  Transmission Date: 20210420
  Serious: No
  Sender: FDA-Public Use
  Company Number: US-TEVA-2021-US-1882480

PATIENT
  Sex: Female

DRUGS (4)
  1. NEFAZODONE TEVA [Suspect]
     Active Substance: NEFAZODONE
     Indication: ANXIETY
  2. LAMICTAL [Suspect]
     Active Substance: LAMOTRIGINE
     Indication: ANXIETY
  3. NEFAZODONE TEVA [Suspect]
     Active Substance: NEFAZODONE
     Indication: DEPRESSION
     Dosage: START DATE: FOR THE PAST 12 YEARS
     Route: 065
     Dates: start: 2009
  4. LAMICTAL [Suspect]
     Active Substance: LAMOTRIGINE
     Indication: DEPRESSION
     Dates: start: 2009

REACTIONS (2)
  - Product availability issue [Unknown]
  - Withdrawal syndrome [Unknown]

NARRATIVE: CASE EVENT DATE: 202009
